FAERS Safety Report 8206268-8 (Version None)
Quarter: 2012Q1

REPORT INFORMATION
  Report Type: 
  Country: None (occurrence: None)
  Receive Date: 20120313
  Receipt Date: 20120227
  Transmission Date: 20120608
  Serious: Yes (Life-Threatening, Hospitalization)
  Sender: FDA-Public Use
  Company Number: PHFR2012GB001481

PATIENT
  Sex: Male

DRUGS (7)
  1. CLOZAPINE [Suspect]
     Dates: end: 20090624
  2. VALPROATE SODIUM [Concomitant]
     Indication: EPILEPSY
     Dosage: 500 MG, BD
  3. CLOPIXOL [Concomitant]
  4. RISPERIDONE [Concomitant]
     Dosage: UNK UKN, UNK
  5. QUETIAPINE [Concomitant]
  6. LEVOTHYROXINE SODIUM [Concomitant]
     Dosage: 10 UG, DAILY
  7. HYDROCORTISONE [Concomitant]
     Dosage: 20 MG, DAILY

REACTIONS (4)
  - MENTAL IMPAIRMENT [None]
  - NEUTROPENIA [None]
  - OVERDOSE [None]
  - SUICIDE ATTEMPT [None]
